FAERS Safety Report 10789311 (Version 1)
Quarter: 2015Q1

REPORT INFORMATION
  Report Type: Spontaneous
  Country: US (occurrence: US)
  Receive Date: 20150212
  Receipt Date: 20150212
  Transmission Date: 20150721
  Serious: No
  Sender: FDA-Public Use
  Company Number: US-GLAXOSMITHKLINE-A1071379A

PATIENT

DRUGS (2)
  1. NO CONCURRENT MEDICATION [Concomitant]
     Active Substance: UNSPECIFIED INGREDIENT
  2. ARIXTRA [Suspect]
     Active Substance: FONDAPARINUX SODIUM
     Dates: start: 201312

REACTIONS (1)
  - Rash [Unknown]

NARRATIVE: CASE EVENT DATE: 201312
